FAERS Safety Report 4494232-4 (Version None)
Quarter: 2004Q4

REPORT INFORMATION
  Report Type: 
  Country: None (occurrence: None)
  Receive Date: 20041102
  Receipt Date: 20041018
  Transmission Date: 20050328
  Serious: Yes (Death)
  Sender: FDA-Public Use
  Company Number: A01200405266

PATIENT
  Age: 21 Year
  Sex: Female

DRUGS (5)
  1. (ZOLPIDEM) [Suspect]
  2. ZOLPIDEM [Suspect]
  3. MIRTAZAPINE [Suspect]
  4. DEXTROPROPOXYPHENE [Suspect]
  5. VENLAFAXINE HCL [Suspect]

REACTIONS (2)
  - DRUG LEVEL ABOVE THERAPEUTIC [None]
  - ILL-DEFINED DISORDER [None]
